FAERS Safety Report 13437248 (Version 1)
Quarter: 2017Q2

REPORT INFORMATION
  Report Type: Report from Study
  Country: FR (occurrence: FR)
  Receive Date: 20170413
  Receipt Date: 20170413
  Transmission Date: 20170830
  Serious: Yes (Hospitalization)
  Sender: FDA-Public Use
  Company Number: FR-ASTELLAS-2017US014060

PATIENT
  Age: 10 Year
  Sex: Female

DRUGS (4)
  1. SOLUPRED                           /00016201/ [Concomitant]
     Active Substance: PREDNISOLONE
     Indication: PRODUCT USED FOR UNKNOWN INDICATION
     Route: 048
  2. RIVOTRIL [Concomitant]
     Active Substance: CLONAZEPAM
     Indication: PRODUCT USED FOR UNKNOWN INDICATION
     Dosage: 2.5 MG/ML, ONE DROP
     Route: 048
     Dates: start: 20141217
  3. ERLOTINIB [Suspect]
     Active Substance: ERLOTINIB
     Indication: GLIOMA
     Route: 048
     Dates: start: 20150202
  4. INEXIUM                            /01479302/ [Concomitant]
     Active Substance: ESOMEPRAZOLE MAGNESIUM
     Indication: PRODUCT USED FOR UNKNOWN INDICATION
     Route: 048
     Dates: start: 20141217

REACTIONS (1)
  - Hydrocephalus [Recovered/Resolved]

NARRATIVE: CASE EVENT DATE: 20150209
